FAERS Safety Report 16992277 (Version 2)
Quarter: 2020Q1

REPORT INFORMATION
  Report Type: Spontaneous
  Country: FR (occurrence: FR)
  Receive Date: 20191105
  Receipt Date: 20200108
  Transmission Date: 20200409
  Serious: Yes (Life-Threatening)
  Sender: FDA-Public Use
  Company Number: FR-TEVA-2019-FR-1130555

PATIENT
  Age: 16 Year
  Sex: Female
  Weight: 95 kg

DRUGS (3)
  1. PARACETAMOL [Suspect]
     Active Substance: ACETAMINOPHEN
     Indication: POISONING DELIBERATE
     Dosage: UNSPECIFIED
     Route: 048
     Dates: start: 20190925, end: 20190925
  2. TARKA [Suspect]
     Active Substance: TRANDOLAPRIL\VERAPAMIL HYDROCHLORIDE
     Indication: POISONING DELIBERATE
     Dosage: UNSPECIFIED
     Route: 048
     Dates: start: 20190925, end: 20190925
  3. TRAMADOL (CHLORHYDRATE DE) [Suspect]
     Active Substance: TRAMADOL HYDROCHLORIDE
     Indication: POISONING DELIBERATE
     Dosage: UNSPECIFIED
     Route: 048
     Dates: start: 20190925, end: 20190925

REACTIONS (10)
  - Bradypnoea [Recovered/Resolved]
  - Miosis [Recovered/Resolved]
  - Dermatitis exfoliative generalised [Recovered/Resolved]
  - Renal failure [Recovered/Resolved]
  - Haemoptysis [Recovered/Resolved]
  - Hepatocellular injury [Recovered/Resolved]
  - Hyponatraemia [Recovered/Resolved]
  - Somnolence [Recovered/Resolved]
  - Bradycardia [Recovered/Resolved]
  - Hypotension [Recovered/Resolved]

NARRATIVE: CASE EVENT DATE: 20190926
